FAERS Safety Report 12070325 (Version 2)
Quarter: 2016Q1

REPORT INFORMATION
  Report Type: Spontaneous
  Country: TR (occurrence: TR)
  Receive Date: 20160211
  Receipt Date: 20160323
  Transmission Date: 20160526
  Serious: Yes (Hospitalization, Other)
  Sender: FDA-Public Use
  Company Number: TR-WATSON-2016-02582

PATIENT
  Age: 55 Year
  Sex: Male

DRUGS (1)
  1. METFORMIN (UNKNOWN) [Suspect]
     Active Substance: METFORMIN HYDROCHLORIDE
     Indication: SUICIDE ATTEMPT
     Dosage: FIFTY TABLETS
     Route: 048
     Dates: start: 201504

REACTIONS (5)
  - Acute kidney injury [Recovering/Resolving]
  - Lactic acidosis [Recovering/Resolving]
  - Intentional overdose [Recovering/Resolving]
  - Suicide attempt [Recovering/Resolving]
  - Myocardial ischaemia [Unknown]

NARRATIVE: CASE EVENT DATE: 201504
